FAERS Safety Report 8882053 (Version 1)
Quarter: 2012Q4

REPORT INFORMATION
  Report Type: Report from Study
  Country: BR (occurrence: BR)
  Receive Date: 20121102
  Receipt Date: 20121102
  Transmission Date: 20130627
  Serious: Yes (Death)
  Sender: FDA-Public Use
  Company Number: BR-ABBOTT-12P-020-1002164-00

PATIENT
  Age: 57 Year
  Sex: Female
  Weight: 74 kg

DRUGS (3)
  1. HUMIRA [Suspect]
     Indication: RHEUMATOID ARTHRITIS
     Route: 058
     Dates: start: 20040101
  2. PREDNISONE [Concomitant]
     Indication: PAIN
     Route: 048
     Dates: start: 1998
  3. PREMARIN [Concomitant]
     Indication: HORMONE REPLACEMENT THERAPY
     Route: 048

REACTIONS (4)
  - Septic shock [Fatal]
  - Vomiting [Recovered/Resolved]
  - Diarrhoea [Recovered/Resolved]
  - Macule [Recovered/Resolved]
